FAERS Safety Report 5400882-0 (Version None)
Quarter: 2007Q3

REPORT INFORMATION
  Report Type: 
  Country: None (occurrence: None)
  Receive Date: 20070730
  Receipt Date: 20070521
  Transmission Date: 20080115
  Serious: No
  Sender: FDA-Public Use
  Company Number: A0652470A

PATIENT
  Sex: Female

DRUGS (1)
  1. IMITREX [Suspect]
     Indication: MIGRAINE
     Dosage: 100MG UNKNOWN
     Route: 048
     Dates: start: 20070419

REACTIONS (3)
  - SWOLLEN TONGUE [None]
  - THROAT TIGHTNESS [None]
  - URTICARIA [None]
